FAERS Safety Report 8779403 (Version 1)
Quarter: 2012Q4

REPORT INFORMATION
  Report Type: Report from Study
  Country: US (occurrence: US)
  Receive Date: 20120912
  Receipt Date: 20120912
  Transmission Date: 20130627
  Serious: Yes (Other)
  Sender: FDA-Public Use
  Company Number: US-US-EMD SERONO, INC.-7159368

PATIENT
  Sex: Female

DRUGS (6)
  1. REBIF [Suspect]
     Indication: MULTIPLE SCLEROSIS
     Route: 058
     Dates: start: 20110119
  2. REBIF [Suspect]
     Route: 058
  3. IBUPROFEN [Concomitant]
     Indication: MULTIPLE SCLEROSIS
     Dosage: from time to time
  4. VITAMIN B12 [Concomitant]
     Indication: VITAMIN B12 DEFICIENCY
  5. VITAMIN D [Concomitant]
     Indication: PRODUCT USED FOR UNKNOWN INDICATION
  6. IRON [Concomitant]
     Indication: IRON DEFICIENCY ANAEMIA

REACTIONS (4)
  - Uterine leiomyoma [Unknown]
  - Anaemia [Unknown]
  - Influenza like illness [Recovered/Resolved]
  - Injection site bruising [Not Recovered/Not Resolved]
